FAERS Safety Report 18006746 (Version 1)
Quarter: 2020Q3

REPORT INFORMATION
  Report Type: Spontaneous
  Country: US (occurrence: US)
  Receive Date: 20200709
  Receipt Date: 20200709
  Transmission Date: 20201103
  Serious: No
  Sender: FDA-Public Use
  Company Number: None

PATIENT

DRUGS (1)
  1. HEPARIN [Suspect]
     Active Substance: HEPARIN SODIUM
     Dosage: ?          OTHER STRENGTH:5000/0.5 UNITS/ML;?
     Route: 058

REACTIONS (3)
  - Product dispensing error [None]
  - Transcription medication error [None]
  - Incorrect dose administered [None]
